FAERS Safety Report 8552503-6 (Version None)
Quarter: 2012Q3

REPORT INFORMATION
  Report Type: 
  Country: None (occurrence: None)
  Receive Date: 20120724
  Receipt Date: 20120724
  Transmission Date: 20120928
  Serious: No
  Sender: FDA-Public Use
  Company Number: None

PATIENT
  Sex: Male

DRUGS (1)
  1. ENBREL [Suspect]
     Indication: PSORIASIS
     Dosage: 50MG TWICE WEEKLY SQ
     Route: 058
     Dates: start: 20120503, end: 20120614

REACTIONS (1)
  - PLATELET COUNT INCREASED [None]
